FAERS Safety Report 10046809 (Version 2)
Quarter: 2014Q2

REPORT INFORMATION
  Report Type: Report from Study
  Country: US (occurrence: US)
  Receive Date: 20140331
  Receipt Date: 20140409
  Transmission Date: 20141212
  Serious: Yes (Hospitalization, Disabling)
  Sender: FDA-Public Use
  Company Number: PHEH2014US006021

PATIENT
  Age: 63 Year
  Sex: Female

DRUGS (10)
  1. GLEEVEC [Suspect]
     Indication: OESOPHAGEAL CARCINOMA
     Dosage: 400 MG, DAILY
     Route: 048
     Dates: start: 20130408
  2. GLEEVEC [Suspect]
     Indication: GASTROINTESTINAL STROMAL TUMOUR
     Dosage: 400 MG, DAILY
     Route: 048
     Dates: start: 201304
  3. METOPROLOL [Concomitant]
     Dosage: UNK UKN, UNK
  4. GABAPENTIN [Concomitant]
     Dosage: UNK UKN, UNK
  5. POTASSIUM [Concomitant]
     Dosage: UNK UKN, UNK
  6. CYMBALTA [Concomitant]
     Dosage: UNK UKN, UNK
  7. ASPIRIN [Concomitant]
     Dosage: UNK UKN, UNK
  8. VITAMIN B12 [Concomitant]
     Dosage: UNK UKN, UNK
  9. VITAMIN D3 [Concomitant]
     Dosage: UNK UKN, UNK
  10. PRAVASTATIN [Concomitant]
     Dosage: UNK UKN, UNK

REACTIONS (5)
  - Fall [Not Recovered/Not Resolved]
  - Mobility decreased [Not Recovered/Not Resolved]
  - Muscular weakness [Not Recovered/Not Resolved]
  - Back pain [Not Recovered/Not Resolved]
  - Neck pain [Not Recovered/Not Resolved]
